FAERS Safety Report 16934140 (Version 1)
Quarter: 2019Q4

REPORT INFORMATION
  Report Type: Spontaneous
  Country: DK (occurrence: DK)
  Receive Date: 20191018
  Receipt Date: 20191018
  Transmission Date: 20200122
  Serious: Yes (Other)
  Sender: FDA-Public Use
  Company Number: DK-ACCORD-158273

PATIENT
  Age: 35 Year
  Sex: Male
  Weight: 103 kg

DRUGS (1)
  1. SERTRALIN ACCORD [Suspect]
     Active Substance: SERTRALINE HYDROCHLORIDE
     Indication: STRESS
     Dosage: STRENGTH: 50 MG
     Route: 048
     Dates: start: 20190923

REACTIONS (1)
  - Urinary retention [Not Recovered/Not Resolved]
